FAERS Safety Report 9456727 (Version 2)
Quarter: 2013Q3

REPORT INFORMATION
  Report Type: Spontaneous
  Country: IT (occurrence: None)
  Receive Date: 20130809
  Receipt Date: 20130823
  Transmission Date: 20140515
  Serious: Yes (Death)
  Sender: FDA-Public Use
  Company Number: INT_00276_2013

PATIENT
  Age: 80 Year
  Sex: Male

DRUGS (8)
  1. MEROPENEM [Suspect]
     Indication: BRAIN ABSCESS
     Dosage: 6 G, QD, IV (NOT OTHERWISE SPECIFIED)
     Route: 042
     Dates: start: 20130605, end: 20130707
  2. METRONIDAZOLE [Suspect]
     Indication: BRAIN ABSCESS
     Dosage: 1.5 MG, , QD,  INTRAVENOUS (NOT OTHERWISE SPECIFIED)
     Route: 042
     Dates: start: 20130605, end: 20130708
  3. DESAMETASONE FOSF /00016010/ [Concomitant]
  4. PARNAPARIN SODIUM [Concomitant]
  5. OMEPRAZOLE [Concomitant]
  6. ENALAPRIL [Concomitant]
  7. LEVOTHYROXINE [Concomitant]
  8. DUTASTERIDE [Concomitant]

REACTIONS (4)
  - Agranulocytosis [None]
  - Thrombocytopenia [None]
  - Septic shock [None]
  - Atrial fibrillation [None]
